FAERS Safety Report 25447930 (Version 1)
Quarter: 2025Q2

REPORT INFORMATION
  Report Type: Spontaneous
  Country: JP (occurrence: JP)
  Receive Date: 20250617
  Receipt Date: 20250617
  Transmission Date: 20250717
  Serious: Yes (Disabling)
  Sender: PFIZER
  Company Number: JP-PFIZER INC-PV202500071896

PATIENT
  Age: 72 Year
  Sex: Male

DRUGS (4)
  1. TAFAMIDIS [Suspect]
     Active Substance: TAFAMIDIS
     Indication: Cardiac amyloidosis
     Route: 048
  2. BISOPROLOL FUMARATE [Concomitant]
     Active Substance: BISOPROLOL FUMARATE
     Route: 048
  3. SACUBITRIL\VALSARTAN [Concomitant]
     Active Substance: SACUBITRIL\VALSARTAN
     Route: 048
  4. DAPAGLIFLOZIN [Concomitant]
     Active Substance: DAPAGLIFLOZIN
     Route: 048

REACTIONS (1)
  - Cardiac disorder [Unknown]
